FAERS Safety Report 10254715 (Version 1)
Quarter: 2014Q2

REPORT INFORMATION
  Report Type: Spontaneous
  Country: US (occurrence: None)
  Receive Date: 20140620
  Receipt Date: 20140620
  Transmission Date: 20141212
  Serious: Yes (Other)
  Sender: FDA-Public Use
  Company Number: None

PATIENT
  Age: 87 Year
  Sex: Female

DRUGS (4)
  1. EYLEA [Suspect]
     Indication: AGE-RELATED MACULAR DEGENERATION
     Dosage: 0.05 ML, ONCE, INTRAVITREAL
     Dates: start: 20140604
  2. CARTIA XT [Concomitant]
  3. CHOLECALCIFEROL [Concomitant]
  4. MULTIPLE VITAMINS-MINERALS [Concomitant]

REACTIONS (5)
  - Eye pain [None]
  - Ocular hyperaemia [None]
  - Corneal oedema [None]
  - Visual acuity reduced [None]
  - Vitritis [None]
